FAERS Safety Report 5409929-9 (Version None)
Quarter: 2007Q3

REPORT INFORMATION
  Report Type: 
  Country: None (occurrence: None)
  Receive Date: 20070809
  Receipt Date: 20070801
  Transmission Date: 20080115
  Serious: Yes (Hospitalization)
  Sender: FDA-Public Use
  Company Number: US-PFIZER INC-2007030849

PATIENT
  Sex: Male
  Weight: 51.8 kg

DRUGS (6)
  1. SUTENT [Suspect]
     Indication: GASTROINTESTINAL STROMAL TUMOUR
     Route: 048
  2. ROXICODONE [Concomitant]
     Route: 048
  3. CLONIDINE [Concomitant]
     Route: 048
  4. ALTACE [Concomitant]
     Route: 048
  5. LABETALOL HCL [Concomitant]
     Route: 048
  6. HYDROCHLOROTHIAZIDE [Concomitant]
     Route: 048

REACTIONS (2)
  - CHEST PAIN [None]
  - HYPERTENSION [None]
